FAERS Safety Report 6164827-0 (Version None)
Quarter: 2009Q2

REPORT INFORMATION
  Report Type: 
  Country: None (occurrence: None)
  Receive Date: 20090423
  Receipt Date: 20090415
  Transmission Date: 20091009
  Serious: Yes (Hospitalization)
  Sender: FDA-Public Use
  Company Number: PHEH2009US03599

PATIENT
  Sex: Female

DRUGS (3)
  1. EXELON [Suspect]
     Indication: BRAIN INJURY
     Dosage: 4.6 MG, UNK
     Route: 062
  2. EXELON [Suspect]
     Indication: MEMORY IMPAIRMENT
  3. ARICEPT [Concomitant]

REACTIONS (12)
  - ANOREXIA [None]
  - ASTHENOPIA [None]
  - CHOKING SENSATION [None]
  - DEPRESSED MOOD [None]
  - DRUG INEFFECTIVE [None]
  - FEELING ABNORMAL [None]
  - FEELING HOT [None]
  - FRUSTRATION [None]
  - INSOMNIA [None]
  - NEOPLASM RECURRENCE [None]
  - PAIN [None]
  - SURGERY [None]
